FAERS Safety Report 8186969-0 (Version None)
Quarter: 2012Q1

REPORT INFORMATION
  Report Type: 
  Country: None (occurrence: None)
  Receive Date: 20120306
  Receipt Date: 20120302
  Transmission Date: 20120608
  Serious: Yes (Other)
  Sender: FDA-Public Use
  Company Number: AU-PFIZER INC-2012055892

PATIENT
  Sex: Male

DRUGS (2)
  1. LIPITOR [Suspect]
     Dosage: 40 MG, UNK
  2. LIPITOR [Suspect]
     Dosage: 20 MG, UNK

REACTIONS (2)
  - MUSCLE DISORDER [None]
  - OSTEOPOROSIS [None]
